FAERS Safety Report 20065506 (Version 2)
Quarter: 2021Q4

REPORT INFORMATION
  Report Type: Report from Study
  Country: GB (occurrence: GB)
  Receive Date: 20211113
  Receipt Date: 20211201
  Transmission Date: 20220304
  Serious: Yes (Hospitalization)
  Sender: FDA-Public Use
  Company Number: GB-NOVARTISPH-NVSC2021GB229195

PATIENT
  Age: 79 Year
  Sex: Male

DRUGS (3)
  1. SANDOSTATIN LAR DEPOT [Suspect]
     Active Substance: OCTREOTIDE ACETATE
     Indication: Neuroendocrine tumour
     Dosage: 30 MG, QMO
     Route: 030
  2. SANDOSTATIN LAR DEPOT [Suspect]
     Active Substance: OCTREOTIDE ACETATE
     Dosage: 30 MG, QMO
     Route: 030
  3. SANDOSTATIN LAR DEPOT [Suspect]
     Active Substance: OCTREOTIDE ACETATE
     Dosage: 20 MG
     Route: 030

REACTIONS (6)
  - Fall [Unknown]
  - Hip fracture [Unknown]
  - Multiple fractures [Unknown]
  - Headache [Recovered/Resolved]
  - Upper limb fracture [Unknown]
  - Product supply issue [Unknown]

NARRATIVE: CASE EVENT DATE: 20211004
